FAERS Safety Report 25610868 (Version 1)
Quarter: 2025Q3

REPORT INFORMATION
  Report Type: Spontaneous
  Country: US (occurrence: None)
  Receive Date: 20250725
  Receipt Date: 20250725
  Transmission Date: 20251021
  Serious: Yes (Hospitalization, Other)
  Sender: FDA-CTU
  Company Number: None

PATIENT
  Age: 55 Year
  Sex: Female

DRUGS (17)
  1. ADEMPAS [Suspect]
     Active Substance: RIOCIGUAT
     Indication: Pulmonary arterial hypertension
     Dosage: FREQUENCY : TWICE A DAY;?
     Route: 048
     Dates: start: 20221021
  2. OPSUMIT [Concomitant]
     Active Substance: MACITENTAN
  3. HYDROMORPHONE [Concomitant]
     Active Substance: HYDROMORPHONE
  4. PREGABALIN [Concomitant]
     Active Substance: PREGABALIN
  5. NARCAN [Concomitant]
     Active Substance: NALOXONE HYDROCHLORIDE
  6. WINREVAIR [Concomitant]
     Active Substance: SOTATERCEPT-CSRK
  7. SENNA [Concomitant]
     Active Substance: SENNOSIDES
  8. MIRALAX [Concomitant]
     Active Substance: POLYETHYLENE GLYCOL 3350
  9. FLEET ENEMA [Concomitant]
     Active Substance: SODIUM PHOSPHATE, DIBASIC\SODIUM PHOSPHATE, MONOBASIC
  10. FUROSEMIDE [Concomitant]
     Active Substance: FUROSEMIDE
  11. RIMEGEPANT [Concomitant]
     Active Substance: RIMEGEPANT
  12. POTASSIUM CHLORIDE [Concomitant]
     Active Substance: POTASSIUM CHLORIDE
  13. PAROXETINE [Concomitant]
     Active Substance: PAROXETINE
  14. TRAZODONE [Suspect]
     Active Substance: TRAZODONE HYDROCHLORIDE
  15. OMEPRAZOLE [Concomitant]
     Active Substance: OMEPRAZOLE
  16. FOLIC ACID [Concomitant]
     Active Substance: FOLIC ACID
  17. VITAMIN B12 [Concomitant]
     Active Substance: CYANOCOBALAMIN

REACTIONS (8)
  - Sciatica [None]
  - Hypoaesthesia [None]
  - Paraesthesia [None]
  - Paraesthesia [None]
  - Dyspnoea [None]
  - Dizziness [None]
  - Mental status changes [None]
  - Overdose [None]

NARRATIVE: CASE EVENT DATE: 20250629
